APPROVED DRUG PRODUCT: IZBA
Active Ingredient: TRAVOPROST
Strength: 0.003% **Federal Register determination that product was not discontinued or withdrawn for safety or effectiveness reasons**
Dosage Form/Route: SOLUTION/DROPS;OPHTHALMIC
Application: N204822 | Product #001
Applicant: NOVARTIS PHARMACEUTICALS CORP
Approved: May 15, 2014 | RLD: Yes | RS: No | Type: DISCN

PATENTS:
Patent 9144561 | Expires: Mar 13, 2029
Patent 8722735 | Expires: Oct 10, 2029
Patent 8754123 | Expires: May 19, 2029
Patent 8178582 | Expires: Oct 10, 2029